FAERS Safety Report 10778149 (Version 3)
Quarter: 2015Q2

REPORT INFORMATION
  Report Type: Report from Study
  Country: US (occurrence: US)
  Receive Date: 20150209
  Receipt Date: 20150428
  Transmission Date: 20150821
  Serious: Yes (Death, Hospitalization, Other)
  Sender: FDA-Public Use
  Company Number: US-GILEAD-2015-0135782

PATIENT
  Age: 52 Year
  Sex: Male

DRUGS (11)
  1. AMBIEN [Concomitant]
     Active Substance: ZOLPIDEM TARTRATE
     Dosage: 10 MG, UNK
     Route: 048
  2. LEDIPASVIR/SOFOSBUVIR [Suspect]
     Active Substance: LEDIPASVIR\SOFOSBUVIR
     Indication: HEPATITIS C
     Dosage: 1 DF, UNK
     Route: 048
     Dates: start: 20150117, end: 201501
  3. CELEXA [Concomitant]
     Active Substance: CITALOPRAM HYDROBROMIDE
     Dosage: 10 UNK
     Route: 048
  4. OLYSIO [Concomitant]
     Active Substance: SIMEPREVIR
     Dosage: UNK
     Route: 065
  5. NADOLOL. [Concomitant]
     Active Substance: NADOLOL
     Dosage: ^400^ UNK
     Route: 048
  6. RIBAVIRIN. [Concomitant]
     Active Substance: RIBAVIRIN
  7. SOVALDI [Concomitant]
     Active Substance: SOFOSBUVIR
     Dosage: UNK
     Route: 065
  8. INTERFERON [Concomitant]
     Active Substance: INTERFERON
  9. XIFAXAN [Concomitant]
     Active Substance: RIFAXIMIN
     Dosage: 550 UNK
     Route: 048
  10. VITAMIN D [Concomitant]
     Active Substance: CHOLECALCIFEROL
     Dosage: UNK
     Route: 048
  11. VALIUM [Suspect]
     Active Substance: DIAZEPAM
     Indication: PRODUCT USED FOR UNKNOWN INDICATION
     Dosage: UNK
     Route: 065

REACTIONS (2)
  - Completed suicide [Fatal]
  - Intentional overdose [Fatal]

NARRATIVE: CASE EVENT DATE: 201501
